FAERS Safety Report 5407988-0 (Version None)
Quarter: 2007Q3

REPORT INFORMATION
  Report Type: 
  Country: None (occurrence: None)
  Receive Date: 20070803
  Receipt Date: 20070725
  Transmission Date: 20080115
  Serious: Yes (Hospitalization)
  Sender: FDA-Public Use
  Company Number: GXKR2007CZ06379

PATIENT
  Age: 27 Year
  Sex: Female

DRUGS (1)
  1. CURAM (NGX) (AMOXICILLIN, CLAVULANATE) UNKNOWN [Suspect]
     Indication: ACUTE TONSILLITIS
     Dosage: 1 G, BID, ORAL
     Route: 048
     Dates: start: 20070622, end: 20070628

REACTIONS (5)
  - GENERAL PHYSICAL HEALTH DETERIORATION [None]
  - LOSS OF CONSCIOUSNESS [None]
  - MALAISE [None]
  - PYREXIA [None]
  - RASH GENERALISED [None]
